FAERS Safety Report 6949153-1 (Version None)
Quarter: 2010Q3

REPORT INFORMATION
  Report Type: 
  Country: None (occurrence: None)
  Receive Date: 20100828
  Receipt Date: 20091207
  Transmission Date: 20110219
  Serious: No
  Sender: FDA-Public Use
  Company Number: US-ABBOTT-09P-163-0613536-00

PATIENT
  Sex: Male
  Weight: 106.69 kg

DRUGS (2)
  1. NIASPAN [Suspect]
     Indication: HYPERCHOLESTEROLAEMIA
     Dosage: AT BED TIME
     Dates: start: 20091201
  2. ASPIRIN [Concomitant]
     Indication: PRODUCT USED FOR UNKNOWN INDICATION

REACTIONS (1)
  - INSOMNIA [None]
